FAERS Safety Report 14893904 (Version 1)
Quarter: 2018Q2

REPORT INFORMATION
  Report Type: Spontaneous
  Country: US (occurrence: US)
  Receive Date: 20180514
  Receipt Date: 20180514
  Transmission Date: 20180711
  Serious: No
  Sender: FDA-Public Use
  Company Number: US-ACTELION-A-NJ2018-171432

PATIENT
  Age: 38 Year
  Sex: Female
  Weight: 102.95 kg

DRUGS (1)
  1. VELETRI [Suspect]
     Active Substance: EPOPROSTENOL
     Indication: PULMONARY HYPERTENSION
     Dosage: 39 NG/KG, PER MIN
     Route: 042

REACTIONS (1)
  - Exposure during pregnancy [Unknown]
